FAERS Safety Report 18963016 (Version 2)
Quarter: 2021Q2

REPORT INFORMATION
  Report Type: Report from Study
  Country: US (occurrence: US)
  Receive Date: 20210303
  Receipt Date: 20210408
  Transmission Date: 20210717
  Serious: No
  Sender: FDA-Public Use
  Company Number: NVSC2021US045603

PATIENT
  Sex: Female

DRUGS (1)
  1. COSENTYX [Suspect]
     Active Substance: SECUKINUMAB
     Indication: JUVENILE PSORIATIC ARTHRITIS
     Dosage: UNK (PEN 2/PK)
     Route: 058

REACTIONS (4)
  - Fatigue [Unknown]
  - Drug ineffective [Unknown]
  - Joint swelling [Unknown]
  - Product use in unapproved indication [Unknown]
